FAERS Safety Report 9242550 (Version 1)
Quarter: 2013Q2

REPORT INFORMATION
  Report Type: Spontaneous
  Country: FR (occurrence: FR)
  Receive Date: 20130419
  Receipt Date: 20130419
  Transmission Date: 20140414
  Serious: Yes (Hospitalization)
  Sender: FDA-Public Use
  Company Number: FR-ROCHE-1216140

PATIENT
  Age: 59 Year
  Sex: Male

DRUGS (3)
  1. AVASTIN [Suspect]
     Indication: GLIOBLASTOMA
     Route: 042
     Dates: start: 20120306
  2. AVASTIN [Suspect]
     Route: 042
     Dates: start: 20130122
  3. AVASTIN [Suspect]
     Route: 042
     Dates: start: 20130212

REACTIONS (1)
  - Hepatitis [Not Recovered/Not Resolved]
